FAERS Safety Report 11169919 (Version 3)
Quarter: 2015Q4

REPORT INFORMATION
  Report Type: Report from Study
  Country: US (occurrence: US)
  Receive Date: 20150607
  Receipt Date: 20151104
  Transmission Date: 20160304
  Serious: No
  Sender: FDA-Public Use
  Company Number: US-AMGEN-USASP2015052293

PATIENT
  Age: 37 Year
  Sex: Female

DRUGS (4)
  1. ENBREL [Suspect]
     Active Substance: ETANERCEPT
     Dosage: UNK
     Route: 065
  2. ENBREL [Suspect]
     Active Substance: ETANERCEPT
     Indication: RHEUMATOID ARTHRITIS
     Dosage: 50 MG, QWK
     Route: 065
     Dates: start: 20141201
  3. ENBREL [Suspect]
     Active Substance: ETANERCEPT
     Dosage: UNK
     Route: 065
  4. METHOTREXATE [Suspect]
     Active Substance: METHOTREXATE
     Indication: PRODUCT USED FOR UNKNOWN INDICATION
     Dosage: UNK
     Route: 065

REACTIONS (13)
  - Oropharyngeal pain [Not Recovered/Not Resolved]
  - Oral mucosal blistering [Unknown]
  - Food intolerance [Recovered/Resolved]
  - Bloody discharge [Not Recovered/Not Resolved]
  - Blister [Unknown]
  - Alopecia [Unknown]
  - Chest pain [Not Recovered/Not Resolved]
  - Vomiting [Recovered/Resolved]
  - Sinusitis [Unknown]
  - Paranasal sinus hypersecretion [Not Recovered/Not Resolved]
  - Gastroenteritis viral [Unknown]
  - Upper respiratory tract infection [Not Recovered/Not Resolved]
  - Nausea [Recovered/Resolved]

NARRATIVE: CASE EVENT DATE: 2015
